FAERS Safety Report 8241219-1 (Version None)
Quarter: 2012Q1

REPORT INFORMATION
  Report Type: 
  Country: None (occurrence: None)
  Receive Date: 20120328
  Receipt Date: 20120326
  Transmission Date: 20120608
  Serious: No
  Sender: FDA-Public Use
  Company Number: US-BAYER-2012-029778

PATIENT

DRUGS (1)
  1. ALEVE (CAPLET) [Suspect]
     Indication: IRRITABILITY

REACTIONS (1)
  - THERAPEUTIC RESPONSE UNEXPECTED [None]
